FAERS Safety Report 5354858-2 (Version None)
Quarter: 2007Q2

REPORT INFORMATION
  Report Type: 
  Country: None (occurrence: None)
  Receive Date: 20070612
  Receipt Date: 20070531
  Transmission Date: 20071010
  Serious: Yes (Other)
  Sender: FDA-Public Use
  Company Number: US-PFIZER INC-2007026845

PATIENT
  Sex: Male
  Weight: 90.7 kg

DRUGS (2)
  1. SUTENT [Suspect]
     Indication: METASTATIC RENAL CELL CARCINOMA
     Route: 048
  2. ACCUPRIL [Concomitant]
     Route: 048

REACTIONS (2)
  - HYPERTENSION [None]
  - ORBITAL OEDEMA [None]
